FAERS Safety Report 24731511 (Version 1)
Quarter: 2024Q4

REPORT INFORMATION
  Report Type: Spontaneous
  Country: US (occurrence: None)
  Receive Date: 20241212
  Receipt Date: 20241212
  Transmission Date: 20250114
  Serious: Yes (Disabling)
  Sender: Public
  Company Number: None

PATIENT
  Age: 60 Year
  Sex: Male

DRUGS (1)
  1. NEOMYCIN [Suspect]
     Active Substance: NEOMYCIN
     Indication: Gastrointestinal microorganism overgrowth
     Dosage: FREQUENCY : TWICE A DAY;?
     Route: 048
     Dates: start: 20241031, end: 20241113

REACTIONS (3)
  - Tinnitus [None]
  - Dizziness [None]
  - Therapy cessation [None]
